FAERS Safety Report 25449580 (Version 1)
Quarter: 2025Q2

REPORT INFORMATION
  Report Type: Report from Study
  Country: US (occurrence: US)
  Receive Date: 20250618
  Receipt Date: 20250618
  Transmission Date: 20250716
  Serious: No
  Sender: BIOGEN
  Company Number: US-BIOGEN-2025BI01313874

PATIENT
  Sex: Female

DRUGS (1)
  1. ZURZUVAE [Suspect]
     Active Substance: ZURANOLONE
     Indication: Perinatal depression
     Dosage: DAILY FOR 14 DAYS
     Route: 050

REACTIONS (4)
  - Anger [Unknown]
  - Sopor [Unknown]
  - Irritability [Unknown]
  - Bradyphrenia [Unknown]
